FAERS Safety Report 7600521-4 (Version None)
Quarter: 2011Q3

REPORT INFORMATION
  Report Type: 
  Country: None (occurrence: None)
  Receive Date: 20110706
  Receipt Date: 20110706
  Transmission Date: 20111222
  Serious: No
  Sender: FDA-Public Use
  Company Number: None

PATIENT
  Sex: Male
  Weight: 89.8122 kg

DRUGS (1)
  1. PRADAXA [Suspect]
     Dosage: 2X A DAY 150MG
     Dates: start: 20110316

REACTIONS (1)
  - COAGULOPATHY [None]
